FAERS Safety Report 4278712-2 (Version None)
Quarter: 2004Q1

REPORT INFORMATION
  Report Type: 
  Country: None (occurrence: None)
  Receive Date: 20040122
  Receipt Date: 20031112
  Transmission Date: 20041129
  Serious: Yes (Death)
  Sender: FDA-Public Use
  Company Number: SUSI-2003-00552

PATIENT
  Age: 21 Year
  Sex: Male

DRUGS (1)
  1. CARBATROL [Suspect]
     Indication: CONVULSION
     Dosage: 300 MG, 2X/DAY, BID

REACTIONS (3)
  - CONVULSION [None]
  - HAEMANGIOMA [None]
  - ROAD TRAFFIC ACCIDENT [None]
